FAERS Safety Report 4396636-7 (Version None)
Quarter: 2004Q3

REPORT INFORMATION
  Report Type: 
  Country: None (occurrence: None)
  Receive Date: 20040709
  Receipt Date: 20040630
  Transmission Date: 20050211
  Serious: Yes (Hospitalization, Other)
  Sender: FDA-Public Use
  Company Number: 2004-06-0261

PATIENT
  Age: 38 Year
  Sex: Female

DRUGS (2)
  1. INTRON A [Suspect]
     Indication: MALIGNANT MELANOMA
     Dosage: 33-15 MIU*
     Dates: start: 20040511, end: 20040601
  2. INTRON A [Suspect]
     Indication: MALIGNANT MELANOMA
     Dosage: 33-15 MIU*
     Dates: start: 20040601

REACTIONS (11)
  - CRYING [None]
  - DEPRESSION [None]
  - DIARRHOEA [None]
  - FATIGUE [None]
  - FEELING ABNORMAL [None]
  - HEADACHE [None]
  - MIGRAINE [None]
  - NAUSEA [None]
  - PAIN IN EXTREMITY [None]
  - SUICIDAL IDEATION [None]
  - VOMITING [None]
